FAERS Safety Report 21673867 (Version 1)
Quarter: 2022Q4

REPORT INFORMATION
  Report Type: Spontaneous
  Country: FR (occurrence: FR)
  Receive Date: 20221202
  Receipt Date: 20221202
  Transmission Date: 20230113
  Serious: Yes (Other)
  Sender: FDA-Public Use
  Company Number: None

PATIENT
  Age: 90 Year
  Sex: Female

DRUGS (7)
  1. CLOPIDOGREL [Suspect]
     Active Substance: CLOPIDOGREL BISULFATE
     Dates: start: 20220926, end: 20220926
  2. OXYCODONE HYDROCHLORIDE [Suspect]
     Active Substance: OXYCODONE HYDROCHLORIDE
     Dates: start: 20220926, end: 20220926
  3. ACETAMINOPHEN [Suspect]
     Active Substance: ACETAMINOPHEN
     Dates: start: 20220926, end: 20220926
  4. PREGABALIN [Suspect]
     Active Substance: PREGABALIN
     Dates: start: 20220926, end: 20220926
  5. LEVOTHYROXINE [Suspect]
     Active Substance: LEVOTHYROXINE
     Dosage: STRENGTH 25 MICROGRAMS, SCORED TABLET
     Dates: start: 20220926, end: 20220926
  6. ZOLOFT [Suspect]
     Active Substance: SERTRALINE HYDROCHLORIDE
     Dosage: STRENGTH 50MG
     Dates: start: 20220926, end: 20220926
  7. OXAZEPAM [Suspect]
     Active Substance: OXAZEPAM
     Dosage: STRENGTH 10 MG
     Dates: start: 20220926, end: 20220926

REACTIONS (5)
  - Oxygen saturation decreased [Recovered/Resolved]
  - Wrong patient [Unknown]
  - Disturbance in attention [Recovered/Resolved]
  - Miosis [Recovered/Resolved]
  - Medication error [Unknown]

NARRATIVE: CASE EVENT DATE: 20220926
